FAERS Safety Report 10677377 (Version 5)
Quarter: 2019Q2

REPORT INFORMATION
  Report Type: Report from Study
  Country: None (occurrence: DE)
  Receive Date: 20141227
  Receipt Date: 20190508
  Transmission Date: 20190711
  Serious: Yes (Life-Threatening, Hospitalization)
  Sender: FDA-Public Use
  Company Number: DE-ABBVIE-10P-062-0642133-00

PATIENT
  Age: 62 Year
  Sex: Female
  Weight: 60.4 kg

DRUGS (11)
  1. HUMIRA [Suspect]
     Active Substance: ADALIMUMAB
     Indication: PSORIATIC ARTHROPATHY
     Route: 058
     Dates: end: 201606
  2. VERAPAMILE [Concomitant]
     Indication: PRODUCT USED FOR UNKNOWN INDICATION
     Dosage: 1-0-1/2
  3. MAGNESIUM VERLA [Concomitant]
     Active Substance: MAGNESIUM
     Indication: PRODUCT USED FOR UNKNOWN INDICATION
     Dosage: 1-0-0
  4. ESIDRIX [Concomitant]
     Active Substance: HYDROCHLOROTHIAZIDE
     Indication: PRODUCT USED FOR UNKNOWN INDICATION
  5. SALICYLIC ACID. [Concomitant]
     Active Substance: SALICYLIC ACID
     Indication: PRODUCT USED FOR UNKNOWN INDICATION
     Dates: start: 20170112
  6. IODIDE [Concomitant]
     Active Substance: IODINE
     Indication: PRODUCT USED FOR UNKNOWN INDICATION
     Dosage: 1-0-0
  7. ATOSIL [Concomitant]
     Indication: PRODUCT USED FOR UNKNOWN INDICATION
     Dosage: AT NIGHT
  8. GLUCOCORTICOIDS [Concomitant]
     Active Substance: UNSPECIFIED INGREDIENT
     Indication: PRODUCT USED FOR UNKNOWN INDICATION
     Dates: start: 20170112
  9. HUMIRA [Suspect]
     Active Substance: ADALIMUMAB
     Indication: PSORIASIS
     Route: 058
     Dates: start: 20081019, end: 20141003
  10. HUMIRA [Suspect]
     Active Substance: ADALIMUMAB
     Route: 058
     Dates: start: 201612
  11. DEKRISTOL [Concomitant]
     Active Substance: CHOLECALCIFEROL
     Indication: PRODUCT USED FOR UNKNOWN INDICATION

REACTIONS (21)
  - Hyponatraemia [Unknown]
  - Arthropod bite [Recovering/Resolving]
  - Borrelia infection [Unknown]
  - Pneumonia [Recovered/Resolved]
  - Cardiac hypertrophy [Unknown]
  - Sepsis [Unknown]
  - pH urine increased [Unknown]
  - Protein urine present [Unknown]
  - Blood glucose increased [Unknown]
  - Lyme disease [Recovering/Resolving]
  - General physical health deterioration [Recovering/Resolving]
  - Immunoglobulins increased [Unknown]
  - Urine albumin/creatinine ratio increased [Unknown]
  - C-reactive protein increased [Recovering/Resolving]
  - Leukocytosis [Unknown]
  - Lung disorder [Unknown]
  - Electrocardiogram repolarisation abnormality [Unknown]
  - Herpes zoster [Unknown]
  - Blood creatinine decreased [Unknown]
  - Urinary sediment present [Unknown]
  - Psoriatic arthropathy [Unknown]

NARRATIVE: CASE EVENT DATE: 2010
